FAERS Safety Report 7525248-9 (Version None)
Quarter: 2011Q2

REPORT INFORMATION
  Report Type: 
  Country: None (occurrence: None)
  Receive Date: 20110526
  Receipt Date: 20110518
  Transmission Date: 20111010
  Serious: Yes (Other)
  Sender: FDA-Public Use
  Company Number: FK201101012

PATIENT
  Age: 69 Year
  Sex: Female
  Weight: 90 kg

DRUGS (2)
  1. CLINDAMYCIN [Suspect]
     Indication: OSTEOMYELITIS
     Dosage: 1.8 GM, 1 IN 1 D
     Dates: start: 20101021, end: 20101105
  2. CEFUROXIME [Suspect]
     Indication: OSTEOMYELITIS
     Dosage: 4.5 GM, 1 IN 1 D, INTRAVENOUS (NOT OTHERWISE SPECIFIED)
     Route: 042
     Dates: start: 20101023, end: 20101105

REACTIONS (1)
  - HEPATOTOXICITY [None]
